FAERS Safety Report 11307461 (Version 1)
Quarter: 2015Q3

REPORT INFORMATION
  Report Type: Report from Study
  Country: BR (occurrence: BR)
  Receive Date: 20150723
  Receipt Date: 20150723
  Transmission Date: 20151125
  Serious: Yes (Death, Life-Threatening, Other)
  Sender: FDA-Public Use
  Company Number: PHHY2015BR085448

PATIENT
  Sex: Male
  Weight: 86 kg

DRUGS (4)
  1. ONBREZ BREEZHALER [Suspect]
     Active Substance: INDACATEROL
     Indication: EMPHYSEMA
     Dosage: 1 DF (1 CPSULE) , QD (IN THE MORNING)
     Route: 065
     Dates: start: 2012, end: 20150507
  2. SPIRIVA [Suspect]
     Active Substance: TIOTROPIUM BROMIDE MONOHYDRATE
     Indication: DYSPNOEA
     Dosage: UNK
     Route: 065
  3. AEROLIN [Suspect]
     Active Substance: ALBUTEROL
     Indication: DYSPNOEA
     Dosage: UNK
     Route: 065
  4. OXYGEN. [Concomitant]
     Active Substance: OXYGEN
     Indication: PRODUCT USED FOR UNKNOWN INDICATION
     Dosage: UNK
     Route: 065

REACTIONS (9)
  - Septic shock [Fatal]
  - Emphysema [Fatal]
  - Pneumonia [Fatal]
  - General physical health deterioration [Unknown]
  - Renal disorder [Fatal]
  - Back pain [Fatal]
  - Cholelithiasis [Unknown]
  - Dyspnoea [Fatal]
  - Abdominal distension [Unknown]
